FAERS Safety Report 21670827 (Version 1)
Quarter: 2022Q4

REPORT INFORMATION
  Report Type: Report from Study
  Country: BR (occurrence: BR)
  Receive Date: 20221202
  Receipt Date: 20221202
  Transmission Date: 20230113
  Serious: Yes (Hospitalization)
  Sender: FDA-Public Use
  Company Number: BR-002147023-NVSC2022BR094551

PATIENT
  Sex: Female

DRUGS (4)
  1. DIOVAN HCT [Suspect]
     Active Substance: HYDROCHLOROTHIAZIDE\VALSARTAN
     Indication: Product used for unknown indication
     Dosage: 1 DOSAGE FORM (IN THE MORNING)
     Route: 065
  2. DIOVAN [Suspect]
     Active Substance: VALSARTAN
     Indication: Hypertension
     Dosage: 1 DOSAGE FORM, BID (ONE TABLET IN THE MORNING AND ONE AT NIGHT)
     Route: 065
  3. DIOVAN [Suspect]
     Active Substance: VALSARTAN
     Dosage: 3 DOSAGE FORM, QD (3 TABLETS) (START MANY YEARS AGO)
     Route: 065
  4. DIOVAN [Suspect]
     Active Substance: VALSARTAN
     Dosage: TWO IN THE MORNING AND ONE IN THE EVENING
     Route: 065

REACTIONS (8)
  - Hyponatraemia [Recovering/Resolving]
  - Hypoacusis [Not Recovered/Not Resolved]
  - Blood pressure fluctuation [Unknown]
  - Agitation [Unknown]
  - Musculoskeletal chest pain [Unknown]
  - Back pain [Unknown]
  - Hypertension [Unknown]
  - Off label use [Unknown]
